FAERS Safety Report 8776159 (Version 1)
Quarter: 2012Q4

REPORT INFORMATION
  Report Type: 
  Country: US (occurrence: US)
  Receive Date: 20120910
  Receipt Date: 20120910
  Transmission Date: 20130627
  Serious: No
  Sender: FDA-Public Use
  Company Number: US-B.I. PHARMACEUTICALS,INC./RIDGEFIELD-2012-BP-21444BP

PATIENT
  Sex: Male
  Weight: 59 kg

DRUGS (7)
  1. SPIRIVA [Suspect]
     Indication: EMPHYSEMA
     Dosage: 18 mcg
     Route: 055
     Dates: start: 2004
  2. LISINOPRIL [Concomitant]
     Indication: HYPERTENSION
     Dosage: 10 mg
     Route: 048
  3. VERAPAMIL [Concomitant]
     Indication: HYPERTENSION
     Dosage: 240 mg
     Route: 048
  4. CLOPIDOGREL [Concomitant]
     Indication: DEVICE OCCLUSION
     Route: 048
     Dates: start: 2001
  5. PRAVASTATIN [Concomitant]
     Indication: MYOCARDIAL INFARCTION
     Route: 048
     Dates: start: 2001
  6. PROAIR [Concomitant]
     Indication: EMPHYSEMA
     Route: 055
     Dates: start: 2004
  7. ALBUTEROL [Concomitant]
     Indication: EMPHYSEMA
     Route: 055
     Dates: start: 2004

REACTIONS (2)
  - Arthritis [Not Recovered/Not Resolved]
  - Abasia [Not Recovered/Not Resolved]
